FAERS Safety Report 23058907 (Version 9)
Quarter: 2025Q3

REPORT INFORMATION
  Report Type: Spontaneous
  Country: US (occurrence: US)
  Receive Date: 20231012
  Receipt Date: 20250807
  Transmission Date: 20251020
  Serious: No
  Sender: PFIZER
  Company Number: US-PFIZER INC-PV202300168051

PATIENT
  Age: 62 Year
  Sex: Female
  Weight: 81.65 kg

DRUGS (3)
  1. IBRANCE [Suspect]
     Active Substance: PALBOCICLIB
     Dates: start: 20231007
  2. IBRANCE [Suspect]
     Active Substance: PALBOCICLIB
  3. IBRANCE [Suspect]
     Active Substance: PALBOCICLIB

REACTIONS (8)
  - Vision blurred [Unknown]
  - COVID-19 [Unknown]
  - Arthralgia [Unknown]
  - Alopecia [Unknown]
  - Product colour issue [Unknown]
  - Product physical issue [Unknown]
  - Product taste abnormal [Unknown]
  - Poor quality product administered [Unknown]

NARRATIVE: CASE EVENT DATE: 20231008
